FAERS Safety Report 9571125 (Version 1)
Quarter: 2013Q4

REPORT INFORMATION
  Report Type: Report from Study
  Country: US (occurrence: US)
  Receive Date: 20131001
  Receipt Date: 20131001
  Transmission Date: 20140711
  Serious: Yes (Hospitalization)
  Sender: FDA-Public Use
  Company Number: PHEH2013US020188

PATIENT
  Age: 37 Year
  Sex: Male

DRUGS (7)
  1. TASIGNA [Suspect]
     Indication: CHRONIC MYELOID LEUKAEMIA
     Dosage: 300 MG, BID
     Route: 048
     Dates: start: 201309, end: 20130922
  2. NADOLOL [Concomitant]
  3. ZOFRAN [Concomitant]
  4. TOPAMAX [Concomitant]
  5. IBUPROFEN [Concomitant]
  6. PREDNISONE [Concomitant]
  7. CYMBALTA [Concomitant]

REACTIONS (2)
  - Pancreatitis [Not Recovered/Not Resolved]
  - Abdominal pain [Not Recovered/Not Resolved]
